FAERS Safety Report 9144008 (Version 2)
Quarter: 2013Q2

REPORT INFORMATION
  Report Type: Report from Study
  Country: ZA (occurrence: ZA)
  Receive Date: 20130306
  Receipt Date: 20130513
  Transmission Date: 20140414
  Serious: Yes (Hospitalization)
  Sender: FDA-Public Use
  Company Number: ZA-ROCHE-1193637

PATIENT
  Sex: Female

DRUGS (4)
  1. MIRCERA [Suspect]
     Indication: PRODUCT USED FOR UNKNOWN INDICATION
     Route: 065
     Dates: start: 201105
  2. MIRCERA [Suspect]
     Dosage: DOSE INCREASE
     Route: 065
     Dates: start: 20110526
  3. MIRCERA [Suspect]
     Route: 058
     Dates: start: 20120331
  4. RECORMON [Suspect]
     Indication: PRODUCT USED FOR UNKNOWN INDICATION
     Route: 058

REACTIONS (2)
  - Neoplasm malignant [Unknown]
  - Medical device complication [Unknown]
